FAERS Safety Report 7978807-3 (Version None)
Quarter: 2011Q4

REPORT INFORMATION
  Report Type: 
  Country: None (occurrence: None)
  Receive Date: 20111214
  Receipt Date: 20111212
  Transmission Date: 20120403
  Serious: Yes (Death, Hospitalization)
  Sender: FDA-Public Use
  Company Number: BR-BRISTOL-MYERS SQUIBB COMPANY-16286544

PATIENT
  Age: 82 Year
  Sex: Male

DRUGS (1)
  1. ONGLYZA [Suspect]
     Indication: DIABETES MELLITUS
     Dosage: STARTED END OF 2010 OR IN THE BEGINNING OF 2011

REACTIONS (2)
  - INFARCTION [None]
  - GASTRIC HAEMORRHAGE [None]
